FAERS Safety Report 4431194-X (Version None)
Quarter: 2004Q3

REPORT INFORMATION
  Report Type: 
  Country: None (occurrence: None)
  Receive Date: 20040824
  Receipt Date: 20040531
  Transmission Date: 20050211
  Serious: Yes (Hospitalization)
  Sender: FDA-Public Use
  Company Number: IT-BRISTOL-MYERS SQUIBB COMPANY-12606844

PATIENT
  Age: 57 Year
  Sex: Female

DRUGS (7)
  1. HOLOXAN [Suspect]
     Indication: LUNG DISORDER
     Dosage: BATCH NUMBER ^PROBABLY ZA015A OR ZK102E (BOTH WERE IN PREPARATION HOLD)
     Route: 042
     Dates: start: 20040511, end: 20040513
  2. UROMITEXAN [Suspect]
     Dates: start: 20040511, end: 20040513
  3. FARMORUBICIN [Suspect]
     Indication: LUNG DISORDER
     Route: 042
     Dates: start: 20040511, end: 20040512
  4. ONDANSETRON [Concomitant]
  5. HALOPERIDOL [Concomitant]
  6. LOSARTAN POTASSIUM + HCTZ [Concomitant]
  7. NIMESULIDE [Concomitant]

REACTIONS (2)
  - ACUTE PSYCHOSIS [None]
  - NEUROPATHY [None]
